FAERS Safety Report 6931863-3 (Version None)
Quarter: 2010Q3

REPORT INFORMATION
  Report Type: 
  Country: None (occurrence: None)
  Receive Date: 20100819
  Receipt Date: 20100810
  Transmission Date: 20110219
  Serious: Yes (Death, Other)
  Sender: FDA-Public Use
  Company Number: BR-PFIZER INC-2010100343

PATIENT
  Age: 47 Year
  Sex: Male

DRUGS (1)
  1. VIAGRA [Suspect]
     Dosage: 50 MG, 1X/DAY, 1 TABLET
     Route: 048
     Dates: start: 20061208

REACTIONS (2)
  - INFARCTION [None]
  - OBESITY [None]
